FAERS Safety Report 10184757 (Version 3)
Quarter: 2014Q2

REPORT INFORMATION
  Report Type: Report from Study
  Country: DE (occurrence: DE)
  Receive Date: 20140521
  Receipt Date: 20140616
  Transmission Date: 20141212
  Serious: Yes (Hospitalization)
  Sender: FDA-Public Use
  Company Number: PHHO2011DE03070

PATIENT
  Age: 54 Year
  Sex: Male

DRUGS (2)
  1. SOM230 [Suspect]
     Indication: NEUROENDOCRINE TUMOUR
     Dosage: 60 MG, Q28D
     Route: 030
     Dates: start: 20110218
  2. SANDOSTATIN LAR [Concomitant]
     Indication: CARCINOID SYNDROME
     Dosage: 300 MG, UNK
     Route: 030
     Dates: start: 20100427, end: 20110117

REACTIONS (8)
  - Condition aggravated [Recovered/Resolved]
  - Renal failure acute [Recovered/Resolved]
  - Device related infection [Unknown]
  - Asthenia [Recovered/Resolved]
  - Dehydration [Recovered/Resolved]
  - Decreased appetite [Recovered/Resolved]
  - Diarrhoea [Recovering/Resolving]
  - Dysuria [Recovered/Resolved]
